FAERS Safety Report 24790087 (Version 1)
Quarter: 2024Q4

REPORT INFORMATION
  Report Type: Spontaneous
  Country: CN (occurrence: CN)
  Receive Date: 20241230
  Receipt Date: 20241230
  Transmission Date: 20250115
  Serious: Yes (Other)
  Sender: AMGEN
  Company Number: CN-AMGEN-CHNSP2024253496

PATIENT

DRUGS (3)
  1. PROLIA [Suspect]
     Active Substance: DENOSUMAB
     Indication: Osteoporosis
     Dosage: 60 MILLIGRAM
     Route: 058
  2. CALCIUM [Concomitant]
     Active Substance: CALCIUM
     Dosage: 600 MILLIGRAM, QD
  3. VITAMIN D [Concomitant]
     Active Substance: VITAMIN D NOS
     Dosage: 400 INTERNATIONAL UNIT, QD

REACTIONS (25)
  - Neutropenia [Unknown]
  - Arthritis infective [Unknown]
  - Blood magnesium increased [Unknown]
  - Synovitis [Unknown]
  - Hypokalaemia [Unknown]
  - White blood cell count increased [Unknown]
  - Blood calcium increased [Unknown]
  - Blood triglycerides increased [Unknown]
  - Blood phosphorus decreased [Unknown]
  - Hypophosphataemia [Unknown]
  - Injection site reaction [Unknown]
  - Alanine aminotransferase increased [Unknown]
  - Protein urine present [Unknown]
  - COVID-19 [Unknown]
  - Blood cholesterol increased [Unknown]
  - Neutrophil count increased [Unknown]
  - Neutrophil count decreased [Unknown]
  - White blood cell count decreased [Unknown]
  - Blood uric acid increased [Unknown]
  - Blood potassium increased [Unknown]
  - Blood creatinine increased [Unknown]
  - Aspartate aminotransferase increased [Unknown]
  - Arthralgia [Unknown]
  - Blood calcium decreased [Unknown]
  - Upper respiratory tract infection [Unknown]
